FAERS Safety Report 9387338 (Version 2)
Quarter: 2013Q3

REPORT INFORMATION
  Report Type: Spontaneous
  Country: US (occurrence: None)
  Receive Date: 20130702
  Receipt Date: 20130716
  Transmission Date: 20140515
  Serious: Yes (Hospitalization)
  Sender: FDA-Public Use
  Company Number: AUR-APL-2013-05507

PATIENT
  Age: 76 Year
  Sex: Female

DRUGS (1)
  1. SIMVASTATIN (SIMVASTATIN) [Suspect]
     Indication: PRODUCT USED FOR UNKNOWN INDICATION

REACTIONS (7)
  - Rhabdomyolysis [None]
  - Autoimmune hepatitis [None]
  - Ascites [None]
  - Myositis [None]
  - Muscle spasms [None]
  - Hepatic cirrhosis [None]
  - Antiphospholipid antibodies positive [None]
